FAERS Safety Report 9264487 (Version 2)
Quarter: 2013Q2

REPORT INFORMATION
  Report Type: Report from Study
  Country: DK (occurrence: DK)
  Receive Date: 20130501
  Receipt Date: 20130506
  Transmission Date: 20140414
  Serious: Yes (Hospitalization, Disabling)
  Sender: FDA-Public Use
  Company Number: PHHO2013DK005445

PATIENT
  Age: 74 Year
  Sex: Female
  Weight: 54 kg

DRUGS (7)
  1. EVEROLIMUS [Suspect]
     Indication: HEART TRANSPLANT
     Dosage: 1 MG, UNK
     Route: 048
     Dates: start: 20060530
  2. CICLOSPORIN [Suspect]
     Indication: HEART TRANSPLANT
     Dosage: 50 MG, UNK
     Route: 048
     Dates: start: 19930522
  3. MAGNYL                             /00228701/ [Concomitant]
     Dosage: 150 MG, UNK
     Route: 065
  4. PRAVACHOL [Concomitant]
     Dosage: 20 MG, UNK
     Route: 065
  5. FURIX [Concomitant]
     Indication: CONGENITAL CYSTIC KIDNEY DISEASE
  6. KALEORID [Concomitant]
  7. ANALGESIC [Concomitant]

REACTIONS (4)
  - Abscess [Recovered/Resolved]
  - Post procedural infection [Recovered/Resolved]
  - Ascites [Recovered/Resolved]
  - Congenital cystic kidney disease [Recovering/Resolving]
